FAERS Safety Report 11576160 (Version 5)
Quarter: 2018Q3

REPORT INFORMATION
  Report Type: Report from Study
  Country: JP (occurrence: JP)
  Receive Date: 20150930
  Receipt Date: 20180813
  Transmission Date: 20181010
  Serious: Yes (Other)
  Sender: FDA-Public Use
  Company Number: JP-ROCHE-1639637

PATIENT

DRUGS (6)
  1. FOLIC ACID. [Concomitant]
     Active Substance: FOLIC ACID
     Indication: PREMEDICATION
     Route: 048
  2. BEVACIZUMAB. [Suspect]
     Active Substance: BEVACIZUMAB
     Indication: NON-SMALL CELL LUNG CANCER
     Dosage: WERE ADMINISTERED ON DAY 1 EVERY 3 WEEKS FOR 4?6 CYCLES AND MAINTENANCE THERAPY WITH BEV (15MG/KG) O
     Route: 042
  3. ERLOTINIB [Suspect]
     Active Substance: ERLOTINIB
     Indication: NON-SMALL CELL LUNG CANCER
     Route: 065
  4. CARBOPLATIN. [Suspect]
     Active Substance: CARBOPLATIN
     Indication: NON-SMALL CELL LUNG CANCER
     Route: 065
  5. PEMETREXED. [Suspect]
     Active Substance: PEMETREXED
     Indication: NON-SMALL CELL LUNG CANCER
     Route: 065
  6. VITAMIN B12 [Concomitant]
     Active Substance: CYANOCOBALAMIN
     Indication: PREMEDICATION
     Route: 065

REACTIONS (16)
  - Malaise [Unknown]
  - Infection [Unknown]
  - Localised oedema [Unknown]
  - Thrombocytopenia [Unknown]
  - Interstitial lung disease [Unknown]
  - Diarrhoea [Unknown]
  - Nausea [Unknown]
  - Neutropenia [Unknown]
  - Anaemia [Unknown]
  - Hypertension [Unknown]
  - Dermatitis acneiform [Unknown]
  - Proteinuria [Unknown]
  - Leukopenia [Unknown]
  - Decreased appetite [Unknown]
  - Aspartate aminotransferase increased [Unknown]
  - Mucosal inflammation [Unknown]
